FAERS Safety Report 7023881-4 (Version None)
Quarter: 2010Q4

REPORT INFORMATION
  Report Type: 
  Country: None (occurrence: None)
  Receive Date: 20101001
  Receipt Date: 20100920
  Transmission Date: 20110411
  Serious: Yes (Other)
  Sender: FDA-Public Use
  Company Number: CO-WYE-H17731510

PATIENT
  Sex: Male

DRUGS (10)
  1. RAPAMUNE [Suspect]
     Indication: PROPHYLAXIS AGAINST TRANSPLANT REJECTION
     Route: 048
     Dates: start: 20061201
  2. MYCOPHENOLATE MOFETIL [Concomitant]
     Route: 065
     Dates: start: 20061101
  3. OMEPRAZOLE [Concomitant]
     Dosage: DOSE AND FREQUENCY NOT SPECIFIED
     Route: 065
  4. FUROSEMIDE [Concomitant]
     Indication: BLOOD POTASSIUM INCREASED
     Route: 065
     Dates: start: 20100101
  5. LANTUS [Concomitant]
     Dosage: 80 UNIT EVERY 1 DAY
     Route: 065
     Dates: start: 19950101
  6. INSULIN LISPRO [Concomitant]
     Dosage: 30 UNIT EVERY 1 DAY
     Route: 065
     Dates: start: 19950101
  7. DIMETICONE, ACTIVATED [Concomitant]
     Indication: FLATULENCE
     Route: 065
     Dates: start: 20080101
  8. LOSARTAN POTASSIUM [Concomitant]
     Indication: PROTEINURIA
     Route: 065
     Dates: start: 20090101
  9. ATORVASTATIN CALCIUM [Suspect]
     Indication: BLOOD CHOLESTEROL INCREASED
     Route: 048
     Dates: start: 20061201
  10. ACETYLSALICYLIC ACID SRT [Concomitant]
     Indication: ANGINA PECTORIS
     Dosage: DOSE AND FREQUENCY NOT SPECIFIED
     Route: 065
     Dates: start: 20061101

REACTIONS (12)
  - ABDOMINAL PAIN [None]
  - ANGINA UNSTABLE [None]
  - BLINDNESS [None]
  - BLOOD POTASSIUM INCREASED [None]
  - CHOLELITHIASIS [None]
  - DISEASE PROGRESSION [None]
  - DYSPEPSIA [None]
  - FATIGUE [None]
  - FLATULENCE [None]
  - PAIN IN EXTREMITY [None]
  - PROTEINURIA [None]
  - PYREXIA [None]
